FAERS Safety Report 24017027 (Version 1)
Quarter: 2024Q2

REPORT INFORMATION
  Report Type: Report from Study
  Country: PT (occurrence: PT)
  Receive Date: 20240626
  Receipt Date: 20240626
  Transmission Date: 20240716
  Serious: Yes (Death, Other)
  Sender: FDA-Public Use
  Company Number: PT-ABBVIE-5816182

PATIENT
  Age: 71 Year
  Sex: Male

DRUGS (8)
  1. CARBIDOPA\LEVODOPA [Suspect]
     Active Substance: CARBIDOPA\LEVODOPA
     Indication: Multiple system atrophy
     Dosage: 20 MG + 5 MG?LAST ADMIN DATE: 2024?FREQUENCY TEXT: UNKNOWN
     Route: 050
     Dates: start: 20240221
  2. CARBIDOPA\LEVODOPA [Suspect]
     Active Substance: CARBIDOPA\LEVODOPA
     Dosage: 20 MG + 5 MG?FREQUENCY TEXT: MORN:3CC;MAINT:0.9CC/H;EXTR:0.5CC
     Route: 050
     Dates: start: 2024, end: 20240623
  3. AMITRIPTYLINE [Concomitant]
     Active Substance: AMITRIPTYLINE
     Indication: Product used for unknown indication
     Dosage: 2 TABLET?FORM STRENGTH: 10 MILLIGRAM?FREQUENCY TEXT: AT DINNER?START DATE TEXT: BEFORE DUODOPA
     Route: 048
  4. DOMPERIDONE [Concomitant]
     Active Substance: DOMPERIDONE
     Indication: Product used for unknown indication
     Dosage: 1 TABLET?FORM STRENGTH: 10 MILLIGRAM?FREQUENCY TEXT: AT LUNCH?START DATE TEXT: BEFORE DUODOPA
     Route: 048
  5. Rosuvastatine/ezetimibe [Concomitant]
     Indication: Dyslipidaemia
     Dosage: 20/10MG?FREQUENCY TEXT: 1 TABLET AT DINNER?START DATE TEXT: BEFORE DUODOPA
     Route: 048
  6. ASPIRIN [Concomitant]
     Active Substance: ASPIRIN
     Indication: Product used for unknown indication
     Dosage: 1 TABLET?FORM STRENGTH: 100 MILLIGRAM?FREQUENCY TEXT: AT LUNCH?START DATE TEXT: BEFORE DUODOPA
     Route: 048
  7. FURADANTIN [Concomitant]
     Active Substance: NITROFURANTOIN
     Indication: Urinary tract infection
     Dosage: 1 TABLET?FORM STRENGTH: 100 MILLIGRAM?FREQUENCY TEXT: AT DINNER?START DATE: BEFORE DUODOPA
     Route: 048
  8. METFORMIN [Concomitant]
     Active Substance: METFORMIN HYDROCHLORIDE
     Indication: Type 2 diabetes mellitus
     Dosage: 1 TABLET?FORM STRENGTH: 850 MILLIGRAM?FREQUENCY TEXT: IN THE MORNING?START DATE: BEFORE DUODOPA
     Route: 048

REACTIONS (3)
  - Cardio-respiratory arrest [Fatal]
  - Choking [Unknown]
  - Obstructive airways disorder [Fatal]

NARRATIVE: CASE EVENT DATE: 20240623
